FAERS Safety Report 7213952-1 (Version None)
Quarter: 2011Q1

REPORT INFORMATION
  Report Type: 
  Country: None (occurrence: None)
  Receive Date: 20110106
  Receipt Date: 20101228
  Transmission Date: 20110831
  Serious: Yes (Hospitalization)
  Sender: FDA-Public Use
  Company Number: JP-MERCK-1010USA00480

PATIENT
  Age: 56 Year
  Sex: Male
  Weight: 71 kg

DRUGS (5)
  1. TS-1 [Concomitant]
     Indication: NEOPLASM MALIGNANT
     Route: 048
     Dates: start: 20100906, end: 20100926
  2. EMEND [Concomitant]
     Indication: PROPHYLAXIS OF NAUSEA AND VOMITING
     Dosage: 125-80 MG
     Route: 048
     Dates: start: 20100913, end: 20100915
  3. DECADRON [Concomitant]
     Dosage: DAILY DOSAGE UNKNOWN
     Route: 042
     Dates: start: 20100913
  4. DECADRON [Suspect]
     Indication: PROPHYLAXIS OF NAUSEA AND VOMITING
     Dosage: DIVIDED DOSE FREQUENCY U
     Route: 048
     Dates: start: 20100914, end: 20100915
  5. CISPLATIN [Concomitant]
     Indication: NEOPLASM MALIGNANT
     Route: 041
     Dates: start: 20100913, end: 20100913

REACTIONS (1)
  - WHITE BLOOD CELL COUNT INCREASED [None]
